FAERS Safety Report 5786479-1 (Version None)
Quarter: 2008Q2

REPORT INFORMATION
  Report Type: 
  Country: None (occurrence: None)
  Receive Date: 20080624
  Receipt Date: 20080612
  Transmission Date: 20081010
  Serious: Yes (Other)
  Sender: FDA-Public Use
  Company Number: US-PFIZER INC-2008037152

PATIENT
  Sex: Female
  Weight: 65.8 kg

DRUGS (7)
  1. DILANTIN [Suspect]
     Indication: CONVULSION
  2. METFORMIN HCL [Suspect]
     Indication: TYPE 2 DIABETES MELLITUS
  3. VYTORIN [Suspect]
     Indication: BLOOD CHOLESTEROL
  4. COD-LIVER OIL [Concomitant]
  5. GARLIC [Concomitant]
  6. ATACAND [Concomitant]
  7. ASPIRIN [Concomitant]

REACTIONS (17)
  - ANTICONVULSANT DRUG LEVEL DECREASED [None]
  - BLOOD CHOLESTEROL [None]
  - CONVULSION [None]
  - DRY MOUTH [None]
  - EYE PAIN [None]
  - FATIGUE [None]
  - GINGIVAL RECESSION [None]
  - HALLUCINATION, VISUAL [None]
  - HEADACHE [None]
  - INJURY [None]
  - MACULAR DEGENERATION [None]
  - OCULAR HYPERAEMIA [None]
  - TINNITUS [None]
  - TRANSIENT ISCHAEMIC ATTACK [None]
  - TYPE 2 DIABETES MELLITUS [None]
  - UNEVALUABLE EVENT [None]
  - VISUAL DISTURBANCE [None]
